FAERS Safety Report 12558219 (Version 10)
Quarter: 2020Q1

REPORT INFORMATION
  Report Type: Spontaneous
  Country: US (occurrence: US)
  Receive Date: 20160714
  Receipt Date: 20200129
  Transmission Date: 20200409
  Serious: Yes (Hospitalization)
  Sender: FDA-Public Use
  Company Number: US-ACTELION-A-US2016-138557

PATIENT
  Age: 73 Year
  Sex: Female
  Weight: 70.8 kg

DRUGS (17)
  1. GLIMEPIRIDE. [Concomitant]
     Active Substance: GLIMEPIRIDE
  2. ADEMPAS [Concomitant]
     Active Substance: RIOCIGUAT
  3. OPSUMIT [Suspect]
     Active Substance: MACITENTAN
     Indication: PULMONARY ARTERIAL HYPERTENSION
     Dosage: 10 MG, QD
     Route: 048
     Dates: start: 20160105
  4. SYMBICORT [Concomitant]
     Active Substance: BUDESONIDE\FORMOTEROL FUMARATE DIHYDRATE
  5. DILTIAZEM CD [Concomitant]
     Active Substance: DILTIAZEM
  6. ALBUTEROL. [Concomitant]
     Active Substance: ALBUTEROL
  7. LOSARTAN. [Concomitant]
     Active Substance: LOSARTAN
  8. NAPROSYN [Concomitant]
     Active Substance: NAPROXEN
  9. METFORMIN [Concomitant]
     Active Substance: METFORMIN HYDROCHLORIDE
  10. JANUVIA [Concomitant]
     Active Substance: SITAGLIPTIN PHOSPHATE
  11. PRAVASTATIN. [Concomitant]
     Active Substance: PRAVASTATIN
  12. CLARITIN [Concomitant]
     Active Substance: LORATADINE
  13. COMBIVENT [Concomitant]
     Active Substance: ALBUTEROL SULFATE\IPRATROPIUM BROMIDE
  14. SPIRIVA [Concomitant]
     Active Substance: TIOTROPIUM BROMIDE MONOHYDRATE
  15. GABAPENTIN. [Concomitant]
     Active Substance: GABAPENTIN
  16. POTASSIUM CHLORIDE. [Concomitant]
     Active Substance: POTASSIUM CHLORIDE
  17. OXYGEN. [Concomitant]
     Active Substance: OXYGEN

REACTIONS (19)
  - Hypoglycaemia [Recovered/Resolved]
  - Troponin increased [Recovered/Resolved]
  - Oxygen saturation decreased [Unknown]
  - Syncope [Unknown]
  - Asthenia [Recovered/Resolved]
  - Dyspnoea [Recovered/Resolved]
  - Skin exfoliation [Not Recovered/Not Resolved]
  - Pain in extremity [Not Recovered/Not Resolved]
  - Tremor [Recovered/Resolved]
  - Haemoglobin decreased [Recovered/Resolved]
  - Fatigue [Not Recovered/Not Resolved]
  - Headache [Not Recovered/Not Resolved]
  - Chest pain [Not Recovered/Not Resolved]
  - Blood carbon monoxide increased [Unknown]
  - Somnolence [Unknown]
  - Gait inability [Recovered/Resolved]
  - White blood cell count decreased [Recovered/Resolved]
  - Abdominal pain upper [Unknown]
  - Constipation [Not Recovered/Not Resolved]

NARRATIVE: CASE EVENT DATE: 201604
